FAERS Safety Report 13349368 (Version 1)
Quarter: 2017Q1

REPORT INFORMATION
  Report Type: Spontaneous
  Country: US (occurrence: US)
  Receive Date: 20170317
  Receipt Date: 20170317
  Transmission Date: 20170428
  Serious: Yes (Other)
  Sender: FDA-Public Use
  Company Number: None

PATIENT
  Age: 49 Year
  Sex: Female

DRUGS (1)
  1. IMIQUIMOD. [Suspect]
     Active Substance: IMIQUIMOD
     Dosage: ?          OTHER FREQUENCY:EVERY OTHER DAY;?
     Route: 061
     Dates: start: 20170219, end: 20170316

REACTIONS (6)
  - Influenza like illness [None]
  - Pain [None]
  - Asthenia [None]
  - Pyrexia [None]
  - Hyperhidrosis [None]
  - Tremor [None]

NARRATIVE: CASE EVENT DATE: 20170316
